FAERS Safety Report 22248981 (Version 1)
Quarter: 2023Q2

REPORT INFORMATION
  Report Type: Spontaneous
  Country: US (occurrence: US)
  Receive Date: 20230425
  Receipt Date: 20230425
  Transmission Date: 20230721
  Serious: No
  Sender: FDA-Public Use
  Company Number: US-drreddys-LIT/USA/23/0163159

PATIENT
  Age: 6 Decade
  Sex: Female

DRUGS (8)
  1. BORTEZOMIB [Suspect]
     Active Substance: BORTEZOMIB
     Indication: Hypergammaglobulinaemia benign monoclonal
     Dosage: CYCLES
     Route: 058
  2. BORTEZOMIB [Suspect]
     Active Substance: BORTEZOMIB
     Indication: Sjogren^s syndrome
  3. DEXAMETHASONE [Suspect]
     Active Substance: DEXAMETHASONE
     Indication: Hypergammaglobulinaemia benign monoclonal
     Dosage: 40 MG IV DAY 1, 40 MG BY MOUTH DAY 8, 15, 22 OF EACH CYCLE
     Route: 042
  4. DEXAMETHASONE [Suspect]
     Active Substance: DEXAMETHASONE
     Indication: Sjogren^s syndrome
  5. DEXAMETHASONE [Suspect]
     Active Substance: DEXAMETHASONE
     Indication: Hypergammaglobulinaemia benign monoclonal
     Dosage: 40 MG IV DAY 1, 40 MG BY MOUTH DAY 8, 15, 22 OF EACH CYCLE
     Route: 048
  6. DEXAMETHASONE [Suspect]
     Active Substance: DEXAMETHASONE
     Indication: Sjogren^s syndrome
  7. DARATUMUMAB [Concomitant]
     Active Substance: DARATUMUMAB
     Indication: Hypergammaglobulinaemia benign monoclonal
     Dosage: W45-CURRENT: W45-53: 16 MG/KG/DOSE INTRAVENOUS (IV) EVERY 2 WEEKS. W54-CURRENT: 16 MG/KG/DOSE IV EVE
     Route: 042
  8. DARATUMUMAB [Concomitant]
     Active Substance: DARATUMUMAB
     Indication: Sjogren^s syndrome

REACTIONS (5)
  - Drug intolerance [Unknown]
  - Orthostatic hypotension [Unknown]
  - Musculoskeletal pain [Unknown]
  - Diarrhoea [Unknown]
  - Product use in unapproved indication [Unknown]
